FAERS Safety Report 16051409 (Version 1)
Quarter: 2019Q2

REPORT INFORMATION
  Report Type: Spontaneous
  Country: US (occurrence: US)
  Receive Date: 20190307
  Receipt Date: 20190307
  Transmission Date: 20190711
  Serious: Yes (Other)
  Sender: FDA-Public Use
  Company Number: None

PATIENT
  Age: 66 Year
  Sex: Male
  Weight: 79.2 kg

DRUGS (22)
  1. PROMETHAZINE [Concomitant]
     Active Substance: PROMETHAZINE\PROMETHAZINE HYDROCHLORIDE
  2. GAS-X EXTRA STRENGTH [Concomitant]
     Active Substance: DIMETHICONE
  3. CAPECITABINE. [Suspect]
     Active Substance: CAPECITABINE
     Indication: PANCREATIC CARCINOMA
     Route: 048
     Dates: start: 20190129
  4. LOVASTATIN. [Concomitant]
     Active Substance: LOVASTATIN
  5. ALEVE [Concomitant]
     Active Substance: NAPROXEN SODIUM
  6. TESTOSTERONE. [Concomitant]
     Active Substance: TESTOSTERONE
  7. MEGESTROL [Concomitant]
     Active Substance: MEGESTROL
  8. COLACE [Concomitant]
     Active Substance: DOCUSATE SODIUM
  9. IMODIUM [Concomitant]
     Active Substance: LOPERAMIDE HYDROCHLORIDE
  10. CENTRUM SILVER [Concomitant]
     Active Substance: MINERALS\VITAMINS
  11. GEMZAR [Concomitant]
     Active Substance: GEMCITABINE HYDROCHLORIDE
  12. LISINOPRIL. [Concomitant]
     Active Substance: LISINOPRIL
  13. NORCO [Concomitant]
     Active Substance: ACETAMINOPHEN\HYDROCODONE BITARTRATE
  14. MILK OF MAGNESIA [Concomitant]
     Active Substance: MAGNESIUM HYDROXIDE
  15. HYDROCHLOROTHIAZIDE. [Concomitant]
     Active Substance: HYDROCHLOROTHIAZIDE
  16. NORTRIPTYLINE [Concomitant]
     Active Substance: NORTRIPTYLINE
  17. XARELTO [Concomitant]
     Active Substance: RIVAROXABAN
  18. AMLODIPINE BESYLATE AND BENAZEPRIL HYDROCHLORIDE [Concomitant]
     Active Substance: AMLODIPINE BESYLATE\BENAZEPRIL HYDROCHLORIDE
  19. METOPROLOL TARTRATE. [Concomitant]
     Active Substance: METOPROLOL TARTRATE
  20. HYDROGEN PEROXIDE. [Concomitant]
     Active Substance: HYDROGEN PEROXIDE
  21. PROCHLORPERAZINE MALEATE. [Concomitant]
     Active Substance: PROCHLORPERAZINE MALEATE
  22. GABAPENTIN. [Concomitant]
     Active Substance: GABAPENTIN

REACTIONS (2)
  - Palmar-plantar erythrodysaesthesia syndrome [None]
  - Stomatitis [None]
